FAERS Safety Report 6175927-3 (Version None)
Quarter: 2009Q2

REPORT INFORMATION
  Report Type: 
  Country: None (occurrence: None)
  Receive Date: 20090501
  Receipt Date: 20090428
  Transmission Date: 20091009
  Serious: Yes (Death)
  Sender: FDA-Public Use
  Company Number: PHHY2009JP16016

PATIENT
  Sex: Female

DRUGS (6)
  1. TASIGNA [Suspect]
     Indication: BLAST CRISIS IN MYELOGENOUS LEUKAEMIA
     Dosage: 400MG/DAY
     Route: 048
     Dates: start: 20090424, end: 20090425
  2. ONCOVIN [Concomitant]
     Indication: CHRONIC MYELOID LEUKAEMIA
     Dosage: 1 MG/DAY
     Route: 042
     Dates: start: 20090403
  3. DRUG THERAPY NOS [Concomitant]
     Indication: CHRONIC MYELOID LEUKAEMIA
     Dosage: 80MG/DAY
     Route: 048
     Dates: start: 20090326, end: 20090403
  4. ADRIACIN [Concomitant]
     Indication: CHRONIC MYELOID LEUKAEMIA
     Dosage: 40 MG/DAY
     Route: 042
     Dates: start: 20090417
  5. VFEND [Concomitant]
     Indication: PROPHYLAXIS
     Dosage: 400MG/DAY
     Route: 048
     Dates: start: 20090408, end: 20090425
  6. MAGLAX [Concomitant]
     Indication: PROPHYLAXIS
     Dosage: 1500 MG/DAY
     Route: 048
     Dates: start: 20090423, end: 20090425

REACTIONS (4)
  - CARDIAC ARREST [None]
  - GENERAL PHYSICAL HEALTH DETERIORATION [None]
  - MALIGNANT NEOPLASM PROGRESSION [None]
  - RESPIRATORY ARREST [None]
